FAERS Safety Report 7390227-1 (Version None)
Quarter: 2011Q2

REPORT INFORMATION
  Report Type: 
  Country: None (occurrence: None)
  Receive Date: 20110401
  Receipt Date: 20110325
  Transmission Date: 20111010
  Serious: Yes (Hospitalization, Other)
  Sender: FDA-Public Use
  Company Number: US-ROCHE-763201

PATIENT
  Sex: Male
  Weight: 77.3 kg

DRUGS (15)
  1. HYDROCORTISONE [Concomitant]
     Dosage: 2 TABLET IN AM AND 1 TABLET IN PM
     Route: 048
  2. DEXAMETHASONE [Concomitant]
  3. LEVETIRACETAM [Concomitant]
     Route: 048
  4. MULTIVITAMIN NOS [Concomitant]
  5. LIDOCAINE [Concomitant]
     Dosage: PRN FOR MUCOUS MEMBRANE
  6. TEMODAR [Suspect]
     Indication: GLIOBLASTOMA
     Dosage: FREQUENCY: DAILY, DOSE: 100 MG
     Route: 048
     Dates: start: 20110210, end: 20110225
  7. ZOFRAN [Concomitant]
     Indication: NAUSEA
     Dosage: 8 MG Q 8 HR AS NECESSARY
  8. LOVENOX [Concomitant]
  9. ACYCLOVIR [Concomitant]
     Dosage: FREQUENCY: 1 APPLICATION DAILY
     Route: 061
  10. BEVACIZUMAB [Suspect]
     Indication: GLIOBLASTOMA
     Dosage: 10 MG/M2
     Route: 042
     Dates: start: 20110210, end: 20110225
  11. SAHA [Suspect]
     Indication: GLIOBLASTOMA
     Dosage: FREQUENCY: 400 MG ONE WEEK ON ONE WEEK OFF
     Route: 048
     Dates: start: 20110210, end: 20110216
  12. ALBUTEROL [Concomitant]
     Dosage: INHALER
  13. METRONIDAZOLE [Concomitant]
     Route: 048
  14. COLLAGEN [Concomitant]
     Dosage: COLLAGENASE CLOSTRIDIUM HISTOLYTICUM, 250 UNIT/GRAM ONCE DAILY.
  15. ENOXAPARIN SODIUM [Concomitant]
     Route: 058

REACTIONS (8)
  - HYPOXIA [None]
  - URINARY TRACT INFECTION [None]
  - HYPOKALAEMIA [None]
  - PNEUMONIA [None]
  - HAEMOGLOBIN [None]
  - HYPOPHOSPHATAEMIA [None]
  - INFECTION [None]
  - GRAND MAL CONVULSION [None]
